FAERS Safety Report 19818231 (Version 1)
Quarter: 2021Q3

REPORT INFORMATION
  Report Type: Spontaneous
  Country: CA (occurrence: CA)
  Receive Date: 20210911
  Receipt Date: 20210911
  Transmission Date: 20211014
  Serious: Yes (Hospitalization)
  Sender: FDA-Public Use
  Company Number: CA-TEVA-2021-CA-1949618

PATIENT
  Age: 35 Month
  Sex: Female
  Weight: 11 kg

DRUGS (11)
  1. CYCLOPHOSPHAMIDE. [Suspect]
     Active Substance: CYCLOPHOSPHAMIDE
     Indication: BRAIN NEOPLASM
  2. ONDANSETRON [Concomitant]
     Active Substance: ONDANSETRON
  3. ETOPOSIDE. [Suspect]
     Active Substance: ETOPOSIDE
     Indication: BRAIN NEOPLASM
  4. EMEND [Concomitant]
     Active Substance: APREPITANT
  5. CISPLATIN INJECTION [Suspect]
     Active Substance: CISPLATIN
     Indication: BRAIN NEOPLASM
  6. MESNA. [Suspect]
     Active Substance: MESNA
     Indication: BRAIN NEOPLASM
  7. DIPHENHYDRAMINE. [Concomitant]
     Active Substance: DIPHENHYDRAMINE
  8. FILGRASTIM [Concomitant]
     Active Substance: FILGRASTIM
  9. VINCRISTINE SULFATE. [Suspect]
     Active Substance: VINCRISTINE SULFATE
     Indication: BRAIN NEOPLASM
  10. LORAZEPAM. [Concomitant]
     Active Substance: LORAZEPAM
  11. METOCLOPRAMIDE. [Concomitant]
     Active Substance: METOCLOPRAMIDE

REACTIONS (1)
  - Febrile neutropenia [Recovered/Resolved]
